FAERS Safety Report 5262825-2 (Version None)
Quarter: 2007Q1

REPORT INFORMATION
  Report Type: 
  Country: None (occurrence: None)
  Receive Date: 20070312
  Receipt Date: 20070307
  Transmission Date: 20070707
  Serious: Yes (Other)
  Sender: FDA-Public Use
  Company Number: HQWYE450105FEB07

PATIENT
  Sex: Female
  Weight: 123 kg

DRUGS (5)
  1. TYGACIL [Suspect]
     Indication: PERITONITIS
     Dosage: 100 MG LOADING DOSE; THEN 50 MG EVERY 12 HRS.
     Route: 042
     Dates: start: 20070130
  2. TYGACIL [Suspect]
     Indication: PANCREATITIS
  3. TYGACIL [Suspect]
     Indication: ABDOMINAL SEPSIS
  4. CASPOFUNGIN ACETATE [Concomitant]
     Indication: PERITONITIS
     Dosage: 70 MG LOADING DOSE; THEN 50 MG EVERY 24 HRS.
     Route: 042
     Dates: start: 20070130, end: 20070205
  5. LEVAQUIN [Concomitant]
     Indication: PERITONITIS
     Route: 042
     Dates: start: 20070123, end: 20070205

REACTIONS (1)
  - METABOLIC ACIDOSIS [None]
